FAERS Safety Report 7939687-5 (Version None)
Quarter: 2011Q4

REPORT INFORMATION
  Report Type: 
  Country: None (occurrence: None)
  Receive Date: 20111125
  Receipt Date: 20111117
  Transmission Date: 20120403
  Serious: Yes (Other)
  Sender: FDA-Public Use
  Company Number: PHEH2011US04817

PATIENT
  Sex: Female

DRUGS (6)
  1. PREDNISONE TAB [Suspect]
     Dosage: 3 DF, DAILY FOR 4 DAYS
  2. PREDNISONE TAB [Suspect]
     Dosage: 8 DF, DAILY FOR 4 DAYS
     Route: 048
  3. PROVIGIL [Concomitant]
     Dosage: 200 MG,DAILY
     Route: 048
  4. VITAMINS NOS [Concomitant]
     Dosage: UNK UKN, UNK
     Route: 048
  5. GILENYA [Suspect]
     Indication: MULTIPLE SCLEROSIS
     Dosage: 0.5 MG, QD
     Route: 048
     Dates: start: 20110804, end: 20111003
  6. PREDNISONE TAB [Suspect]
     Dosage: 2 DF, DAILY FOR 4 DAYS
     Dates: end: 20111011

REACTIONS (11)
  - VISUAL ACUITY REDUCED [None]
  - DYSPNOEA [None]
  - FATIGUE [None]
  - DIZZINESS [None]
  - ASTHENIA [None]
  - TREMOR [None]
  - VISION BLURRED [None]
  - EYE PAIN [None]
  - GAIT DISTURBANCE [None]
  - HEADACHE [None]
  - FEELING ABNORMAL [None]
